FAERS Safety Report 19065315 (Version 2)
Quarter: 2021Q1

REPORT INFORMATION
  Report Type: Spontaneous
  Country: US (occurrence: US)
  Receive Date: 20210327
  Receipt Date: 20210330
  Transmission Date: 20210420
  Serious: No
  Sender: FDA-Public Use
  Company Number: US-SA-2021SA091692

PATIENT
  Age: 68 Year
  Sex: Female

DRUGS (1)
  1. SOLIQUA 100/33 [Suspect]
     Active Substance: INSULIN GLARGINE\LIXISENATIDE
     Indication: DIABETES MELLITUS
     Dosage: 45 IU, QD
     Route: 065

REACTIONS (3)
  - Blood glucose increased [Unknown]
  - Gait disturbance [Unknown]
  - Depressed mood [Unknown]
